FAERS Safety Report 21504115 (Version 1)
Quarter: 2022Q4

REPORT INFORMATION
  Report Type: Spontaneous
  Country: US (occurrence: None)
  Receive Date: 20221025
  Receipt Date: 20221025
  Transmission Date: 20230112
  Serious: No
  Sender: FDA-Public Use
  Company Number: None

PATIENT
  Age: 69 Year
  Sex: Male
  Weight: 72.89 kg

DRUGS (17)
  1. CYCLOPHOSPHAMIDE [Suspect]
     Active Substance: CYCLOPHOSPHAMIDE
     Indication: Prostate cancer
     Dosage: FREQUENCY : DAILY;?
     Route: 048
     Dates: start: 202209
  2. CALCIUM 500 + D3 [Concomitant]
  3. COENZYME Q10 [Concomitant]
     Active Substance: DIETARY SUPPLEMENT\UBIDECARENONE
  4. CRESTOR [Concomitant]
     Active Substance: ROSUVASTATIN CALCIUM
  5. ELIQUIS [Concomitant]
     Active Substance: APIXABAN
  6. FISH OIL [Concomitant]
     Active Substance: FISH OIL
  7. GLUCOSAMINE [Concomitant]
     Active Substance: GLUCOSAMINE
  8. DEVICE [Concomitant]
     Active Substance: DEVICE
  9. LORAZEPAM [Concomitant]
     Active Substance: LORAZEPAM
  10. LORAZEPAM [Concomitant]
     Active Substance: LORAZEPAM
  11. LORAZEPAM [Concomitant]
     Active Substance: LORAZEPAM
  12. LUPRON [Concomitant]
     Active Substance: LEUPROLIDE ACETATE
  13. METOPROLOL [Concomitant]
     Active Substance: METOPROLOL
  14. VITAMINS [Concomitant]
     Active Substance: VITAMINS
  15. PREDNISONE [Concomitant]
     Active Substance: PREDNISONE
  16. TRUE METRIX BLOOD GLUCOSE TEST [Concomitant]
  17. ZOLEDRONIC ACID [Concomitant]
     Active Substance: ZOLEDRONIC ACID

REACTIONS (2)
  - Toxicity to various agents [None]
  - Blood test abnormal [None]
